FAERS Safety Report 17663795 (Version 2)
Quarter: 2020Q2

REPORT INFORMATION
  Report Type: Report from Study
  Country: US (occurrence: US)
  Receive Date: 20200414
  Receipt Date: 20200415
  Transmission Date: 20200713
  Serious: No
  Sender: FDA-Public Use
  Company Number: US-GW PHARMA-202003USGW01138

PATIENT

DRUGS (1)
  1. EPIDIOLEX [Suspect]
     Active Substance: CANNABIDIOL
     Indication: EPILEPSY
     Dosage: UNK
     Route: 048

REACTIONS (4)
  - Irritability [Unknown]
  - Abnormal weight gain [Unknown]
  - Decreased appetite [Unknown]
  - Product use in unapproved indication [Not Recovered/Not Resolved]
